FAERS Safety Report 5898211-1 (Version None)
Quarter: 2008Q3

REPORT INFORMATION
  Report Type: 
  Country: None (occurrence: None)
  Receive Date: 20080911
  Receipt Date: 20080303
  Transmission Date: 20090109
  Serious: Yes (Other)
  Sender: FDA-Public Use
  Company Number: 2008-0015554

PATIENT
  Age: 42 Year
  Sex: Male

DRUGS (3)
  1. ATRIPLA [Suspect]
     Indication: HIV INFECTION
     Dosage: 1 DOSAGE FORMS, 1 IN 1 D, ORAL
     Route: 048
     Dates: start: 20070926, end: 20080130
  2. MULTI-VITAMINS [Concomitant]
  3. RED BULL ENERGY DRINK [Concomitant]

REACTIONS (4)
  - FATIGUE [None]
  - HEPATITIS TOXIC [None]
  - LIVER FUNCTION TEST ABNORMAL [None]
  - NAUSEA [None]
